FAERS Safety Report 9212619 (Version 2)
Quarter: 2013Q2

REPORT INFORMATION
  Report Type: Spontaneous
  Country: US (occurrence: US)
  Receive Date: 20130405
  Receipt Date: 20130501
  Transmission Date: 20140414
  Serious: No
  Sender: FDA-Public Use
  Company Number: US-BIOGENIDEC-2013BI030802

PATIENT
  Sex: Female
  Weight: 42 kg

DRUGS (1)
  1. AVONEX [Suspect]
     Indication: MULTIPLE SCLEROSIS
     Route: 030
     Dates: start: 19991102

REACTIONS (4)
  - Weight decreased [Not Recovered/Not Resolved]
  - Muscle atrophy [Unknown]
  - Stress [Not Recovered/Not Resolved]
  - Muscular weakness [Not Recovered/Not Resolved]
